FAERS Safety Report 19080884 (Version 5)
Quarter: 2021Q2

REPORT INFORMATION
  Report Type: Report from Study
  Country: KE (occurrence: KE)
  Receive Date: 20210331
  Receipt Date: 20210429
  Transmission Date: 20210717
  Serious: Yes (Life-Threatening, Other)
  Sender: FDA-Public Use
  Company Number: NVSC2021KE069609

PATIENT
  Age: 55 Year
  Sex: Male
  Weight: 93 kg

DRUGS (6)
  1. ALDACTONE [Concomitant]
     Active Substance: SPIRONOLACTONE
     Indication: PRODUCT USED FOR UNKNOWN INDICATION
     Dosage: 25 MG, BID
     Route: 065
  2. UPERIO [Suspect]
     Active Substance: SACUBITRIL\VALSARTAN
     Indication: CONGESTIVE CARDIOMYOPATHY
     Dosage: 25 MG, BID
     Route: 048
  3. UPERIO [Suspect]
     Active Substance: SACUBITRIL\VALSARTAN
     Indication: CARDIAC FAILURE CHRONIC
     Dosage: 50 MG, BID
     Route: 048
     Dates: start: 20180926
  4. HYDRALAZINE [Concomitant]
     Active Substance: HYDRALAZINE HYDROCHLORIDE
     Indication: PRODUCT USED FOR UNKNOWN INDICATION
     Dosage: UNK
     Route: 065
  5. UPERIO [Suspect]
     Active Substance: SACUBITRIL\VALSARTAN
     Indication: EJECTION FRACTION DECREASED
  6. UPERIO [Suspect]
     Active Substance: SACUBITRIL\VALSARTAN
     Indication: LEFT VENTRICULAR DYSFUNCTION

REACTIONS (3)
  - Hypotension [Recovered/Resolved]
  - Product use in unapproved indication [Unknown]
  - Incorrect dose administered [Not Recovered/Not Resolved]

NARRATIVE: CASE EVENT DATE: 20210314
